FAERS Safety Report 19145960 (Version 1)
Quarter: 2021Q2

REPORT INFORMATION
  Report Type: Other
  Country: GB (occurrence: GB)
  Receive Date: 20210416
  Receipt Date: 20210416
  Transmission Date: 20210717
  Serious: Yes (Hospitalization)
  Sender: FDA-Public Use
  Company Number: GB-CELLTRION INC.-2021GB004825

PATIENT

DRUGS (39)
  1. PERTUZUMAB. [Suspect]
     Active Substance: PERTUZUMAB
     Indication: BREAST CANCER METASTATIC
     Dosage: 420 MG, ONCE IN 3 WEEKS
     Route: 042
     Dates: start: 20150420
  2. RANITIDINE. [Concomitant]
     Active Substance: RANITIDINE
     Indication: GASTROOESOPHAGEAL REFLUX DISEASE
     Dosage: 300 MG, QD
     Route: 048
     Dates: start: 20150421
  3. CODEINE PHOSPHATE [Concomitant]
     Active Substance: CODEINE PHOSPHATE
     Indication: ARTHRALGIA
     Dosage: 30 MG
     Route: 048
     Dates: start: 20160816
  4. IBUPROFEN. [Concomitant]
     Active Substance: IBUPROFEN
     Indication: SPINAL PAIN
     Dosage: 400 MG
     Route: 048
     Dates: start: 20161229
  5. LOPERAMIDE [Concomitant]
     Active Substance: LOPERAMIDE
     Indication: DIARRHOEA
     Dosage: PRN (AS NEEDED)
     Route: 048
     Dates: start: 20150516, end: 20150516
  6. AVEENO [Concomitant]
     Active Substance: DIMETHICONE\HOMOSALATE\OCTINOXATE\OCTISALATE\TITANIUM DIOXIDE
     Dosage: UNK
     Route: 061
     Dates: start: 20190114
  7. CALCEOS [Concomitant]
     Active Substance: CALCIUM CARBONATE\CHOLECALCIFEROL
     Dosage: 1 DF, QD
     Route: 048
     Dates: start: 20150713, end: 20150824
  8. DENOSUMAB [Concomitant]
     Active Substance: DENOSUMAB
     Dosage: 240 MG, QD
     Route: 048
     Dates: start: 20180115
  9. LAXIDO [Concomitant]
     Active Substance: POLYETHYLENE GLYCOL 3350\POTASSIUM CHLORIDE\SODIUM BICARBONATE\SODIUM CHLORIDE
     Indication: INFLUENZA
     Dosage: 1 OTHER
     Route: 048
     Dates: start: 20180219, end: 20180220
  10. NAPROXEN. [Concomitant]
     Active Substance: NAPROXEN
     Indication: INFLUENZA
     Dosage: 1000 MG, QD
     Route: 048
     Dates: start: 20180218, end: 20180220
  11. TAZOCIN [Concomitant]
     Active Substance: PIPERACILLIN SODIUM\TAZOBACTAM SODIUM
     Indication: INFLUENZA
     Dosage: 13.5 G, QD
     Route: 042
     Dates: start: 20180218, end: 20180220
  12. DOCETAXEL. [Suspect]
     Active Substance: DOCETAXEL
     Dosage: 150 MG, ONCE IN 3 WEEKS
     Route: 042
     Dates: start: 20150421, end: 20150421
  13. ADCAL D3 [Concomitant]
     Active Substance: CALCIUM CARBONATE\CHOLECALCIFEROL
     Dosage: 2 DF, QD
     Route: 048
     Dates: start: 20150623, end: 20150625
  14. BRUFEN [Concomitant]
     Active Substance: IBUPROFEN
     Indication: ARTHRALGIA
     Dosage: 400 MG, QD
     Route: 048
     Dates: start: 20150420, end: 20150426
  15. DOMPERIDONE [Concomitant]
     Active Substance: DOMPERIDONE
     Indication: NAUSEA
     Dosage: 30 MG, QD
     Route: 048
     Dates: start: 20150420, end: 20150427
  16. NAPROXEN. [Concomitant]
     Active Substance: NAPROXEN
     Indication: ARTHRALGIA
     Dosage: 250 MG
     Route: 048
     Dates: start: 2015, end: 20160314
  17. OMEPRAZOLE. [Concomitant]
     Active Substance: OMEPRAZOLE
     Indication: GASTRITIS
     Dosage: 20 MG, QD
     Route: 048
     Dates: start: 20150622, end: 20150713
  18. VASELINE PURE [Concomitant]
     Active Substance: PETROLATUM
     Indication: EPISTAXIS
     Dosage: 1 TBSP (TABLESPOON
     Route: 061
     Dates: start: 20160816
  19. PERTUZUMAB. [Suspect]
     Active Substance: PERTUZUMAB
     Dosage: 840 MG, ONCE IN 3 WEEKS
     Route: 042
     Dates: start: 20150420
  20. HYDROCORTISONE. [Concomitant]
     Active Substance: HYDROCORTISONE
     Indication: ECZEMA
     Dosage: 1 [DRP]
     Route: 061
  21. PARACETAMOL [Concomitant]
     Active Substance: ACETAMINOPHEN
     Dosage: 1 G
     Route: 048
     Dates: start: 20150420, end: 20180217
  22. TAMIFLU [Concomitant]
     Active Substance: OSELTAMIVIR PHOSPHATE
     Indication: INFLUENZA
     Dosage: 150 MG, QD
     Route: 048
     Dates: start: 20180219, end: 20180226
  23. TRASTUZUMAB (UNKNOWN) [Suspect]
     Active Substance: TRASTUZUMAB
     Indication: BREAST CANCER METASTATIC
     Dosage: 600 MG, ONCE IN 3 WEEKS
     Route: 042
     Dates: start: 20150420
  24. ACICLOVIR [Concomitant]
     Active Substance: ACYCLOVIR
     Indication: GENITAL HERPES
     Dosage: 800 MG, QD
     Route: 048
     Dates: start: 20170211, end: 20170218
  25. AMOXIL [Concomitant]
     Active Substance: AMOXICILLIN
     Indication: LOWER RESPIRATORY TRACT INFECTION
     Dosage: 500 MG, QD
     Route: 048
     Dates: start: 20171227, end: 20180102
  26. AVEENO [Concomitant]
     Active Substance: DIMETHICONE\HOMOSALATE\OCTINOXATE\OCTISALATE\TITANIUM DIOXIDE
     Indication: ECZEMA
     Dosage: UNK
     Route: 061
     Dates: start: 20181112
  27. CODEINE [Concomitant]
     Active Substance: CODEINE
     Indication: ARTHRALGIA
     Dosage: 30 MG
     Route: 048
     Dates: start: 20151221, end: 20160425
  28. DENOSUMAB [Concomitant]
     Active Substance: DENOSUMAB
     Dosage: 120 MG, MONTHLY
     Route: 058
     Dates: start: 20150623, end: 20170508
  29. MEGACE [Concomitant]
     Active Substance: MEGESTROL ACETATE
     Indication: MENOPAUSAL SYMPTOMS
     Dosage: 80 MG, QD
     Route: 048
     Dates: start: 20150601
  30. TAZOCIN [Concomitant]
     Active Substance: PIPERACILLIN SODIUM\TAZOBACTAM SODIUM
     Indication: NEUTROPENIC SEPSIS
     Dosage: 13.5 G, QD
     Route: 042
     Dates: start: 20150429
  31. DOCETAXEL. [Suspect]
     Active Substance: DOCETAXEL
     Indication: BREAST CANCER METASTATIC
     Dosage: 120 MG, ONCE IN 3 WEEKS
     Route: 042
     Dates: start: 20150512, end: 20150804
  32. DOCETAXEL. [Suspect]
     Active Substance: DOCETAXEL
     Dosage: 150 MG, ONCE IN 3 WEEKS
     Route: 042
     Dates: start: 20150421, end: 20150421
  33. PARACETAMOL [Concomitant]
     Active Substance: ACETAMINOPHEN
     Indication: INFLUENZA
     Dosage: 4 G, QD
     Route: 048
     Dates: start: 20180218, end: 20180220
  34. SENNA [Concomitant]
     Active Substance: SENNA LEAF\SENNOSIDES\SENNOSIDES A AND B
     Indication: INFLUENZA
     Dosage: 1 OTHER
     Route: 048
     Dates: start: 20180219, end: 20180220
  35. ZOPICLONE [Concomitant]
     Active Substance: ZOPICLONE
     Indication: SLEEP DISORDER
     Dosage: 3.75 MG
     Route: 048
     Dates: start: 20151019
  36. DOCETAXEL. [Suspect]
     Active Substance: DOCETAXEL
     Dosage: 120 MG, ONCE IN 3 WEEKS
     Route: 042
     Dates: start: 20150512, end: 20150804
  37. CO?AMOXICLAV [Concomitant]
     Active Substance: AMOXICILLIN\CLAVULANATE POTASSIUM
     Indication: INFLUENZA
     Dosage: 1875 MG, QD
     Route: 048
     Dates: start: 20180220, end: 20180225
  38. ENOXAPARIN [Concomitant]
     Active Substance: ENOXAPARIN
     Dosage: 40 MG, QD
     Route: 058
     Dates: start: 20180219, end: 20180220
  39. PARACETAMOL [Concomitant]
     Active Substance: ACETAMINOPHEN
     Indication: ARTHRALGIA
     Dosage: 4 G, QD
     Route: 048
     Dates: start: 20150427, end: 20150505

REACTIONS (2)
  - Ovarian cyst [Recovered/Resolved]
  - Abdominal pain [Recovered/Resolved]

NARRATIVE: CASE EVENT DATE: 20160125
